FAERS Safety Report 4690259-8 (Version None)
Quarter: 2005Q2

REPORT INFORMATION
  Report Type: 
  Country: None (occurrence: None)
  Receive Date: 20050615
  Receipt Date: 20050310
  Transmission Date: 20051028
  Serious: Yes (Hospitalization, Disabling, Other)
  Sender: FDA-Public Use
  Company Number: US-MERCK-0503USA02091

PATIENT
  Age: 56 Year
  Sex: Female
  Weight: 102 kg

DRUGS (7)
  1. VIOXX [Suspect]
     Indication: OSTEOARTHRITIS
     Route: 048
     Dates: start: 20010101, end: 20010423
  2. VIOXX [Suspect]
     Route: 048
     Dates: start: 20010501, end: 20030623
  3. VIOXX [Suspect]
     Indication: BACK PAIN
     Route: 048
     Dates: start: 20010101, end: 20010423
  4. VIOXX [Suspect]
     Route: 048
     Dates: start: 20010501, end: 20030623
  5. NAPROSYN [Concomitant]
     Route: 065
     Dates: start: 20020101, end: 20040101
  6. PAXIL [Concomitant]
     Route: 065
     Dates: start: 20020101, end: 20040101
  7. SYNTHROID [Concomitant]
     Route: 065

REACTIONS (35)
  - ANAEMIA [None]
  - ANGINA PECTORIS [None]
  - ANXIETY DISORDER [None]
  - AORTIC ATHEROSCLEROSIS [None]
  - ATRIAL FIBRILLATION [None]
  - ATRIAL SEPTAL DEFECT [None]
  - BRONCHITIS [None]
  - CARDIAC DISORDER [None]
  - CELLULITIS [None]
  - CEREBRAL INFARCTION [None]
  - CEREBROVASCULAR ACCIDENT [None]
  - CORONARY ARTERY DISEASE [None]
  - CYSTITIS [None]
  - DEEP VEIN THROMBOSIS [None]
  - DEPRESSION [None]
  - EMOTIONAL DISTRESS [None]
  - EMPHYSEMA [None]
  - HIATUS HERNIA [None]
  - HYPERTRIGLYCERIDAEMIA [None]
  - HYPOAESTHESIA [None]
  - HYPOKALAEMIA [None]
  - HYPOTENSION [None]
  - INTERVERTEBRAL DISC PROTRUSION [None]
  - LABYRINTHITIS [None]
  - OESOPHAGITIS [None]
  - OSTEOPOROSIS [None]
  - PRURITUS GENERALISED [None]
  - PULMONARY CONGESTION [None]
  - RASH ERYTHEMATOUS [None]
  - SINUS TACHYCARDIA [None]
  - SINUSITIS [None]
  - THORACIC OUTLET SYNDROME [None]
  - UPPER RESPIRATORY TRACT INFECTION [None]
  - URINARY TRACT INFECTION [None]
  - VAGINITIS GARDNERELLA [None]
